FAERS Safety Report 11235716 (Version 3)
Quarter: 2015Q3

REPORT INFORMATION
  Report Type: Spontaneous
  Country: JP (occurrence: JP)
  Receive Date: 20150702
  Receipt Date: 20150922
  Transmission Date: 20151125
  Serious: Yes (Life-Threatening)
  Sender: FDA-Public Use
  Company Number: JP-BRISTOL-MYERS SQUIBB COMPANY-BMS-2015-042459

PATIENT
  Age: 56 Year
  Sex: Male

DRUGS (4)
  1. GLIMEPIRIDE. [Concomitant]
     Active Substance: GLIMEPIRIDE
     Indication: DIABETES MELLITUS
     Dosage: 1 DF, UNK
     Route: 048
     Dates: start: 201406
  2. LIPIDIL [Suspect]
     Active Substance: FENOFIBRATE
     Indication: HYPERLIPIDAEMIA
     Dosage: 2 DF, UNK
     Route: 048
     Dates: start: 201406, end: 20150609
  3. METGLUCO [Suspect]
     Active Substance: METFORMIN HYDROCHLORIDE
     Indication: DIABETES MELLITUS
     Dosage: 2 DF, UNK
     Route: 048
     Dates: start: 201406, end: 20150609
  4. EQUA [Suspect]
     Active Substance: VILDAGLIPTIN
     Indication: PRODUCT USED FOR UNKNOWN INDICATION
     Dosage: 2 DF, UNK
     Route: 048
     Dates: start: 201406, end: 20150609

REACTIONS (1)
  - Hepatitis acute [Recovered/Resolved]

NARRATIVE: CASE EVENT DATE: 20150609
